FAERS Safety Report 9922071 (Version 3)
Quarter: 2014Q2

REPORT INFORMATION
  Report Type: Spontaneous
  Country: US (occurrence: US)
  Receive Date: 20140225
  Receipt Date: 20140606
  Transmission Date: 20141212
  Serious: Yes (Hospitalization, Other)
  Sender: FDA-Public Use
  Company Number: US-BAXTER-2014BAX008495

PATIENT
  Sex: Male

DRUGS (1)
  1. DIANEAL LOW CALCIUM [Suspect]
     Indication: PERITONEAL DIALYSIS
     Route: 033
     Dates: start: 2012, end: 201402

REACTIONS (8)
  - Pleural effusion [Not Recovered/Not Resolved]
  - Haematemesis [Not Recovered/Not Resolved]
  - Oxygen saturation decreased [Not Recovered/Not Resolved]
  - Peritoneal dialysis complication [Unknown]
  - Apparent death [Unknown]
  - Pneumothorax [Unknown]
  - Post procedural complication [Unknown]
  - Abdominal pain upper [Recovering/Resolving]
